FAERS Safety Report 24810916 (Version 2)
Quarter: 2025Q1

REPORT INFORMATION
  Report Type: Report from Study
  Country: US (occurrence: US)
  Receive Date: 20250106
  Receipt Date: 20250108
  Transmission Date: 20250409
  Serious: Yes (Other)
  Sender: ABBVIE
  Company Number: US-ABBVIE-6070090

PATIENT
  Age: 80 Year
  Sex: Female

DRUGS (1)
  1. VENCLEXTA [Suspect]
     Active Substance: VENETOCLAX
     Indication: Follicular lymphoma
     Dosage: FORM STRENGTH: 100 MG
     Route: 048

REACTIONS (5)
  - Neoplasm malignant [Unknown]
  - Off label use [Not Recovered/Not Resolved]
  - Hypoacusis [Unknown]
  - Product container seal issue [Unknown]
  - Poor quality product administered [Unknown]

NARRATIVE: CASE EVENT DATE: 20241231
